FAERS Safety Report 7679759-6 (Version None)
Quarter: 2011Q3

REPORT INFORMATION
  Report Type: 
  Country: None (occurrence: None)
  Receive Date: 20110812
  Receipt Date: 20110801
  Transmission Date: 20111222
  Serious: No
  Sender: FDA-Public Use
  Company Number: US-JNJFOC-20110801293

PATIENT
  Sex: Female
  Weight: 68.04 kg

DRUGS (3)
  1. TOPAMAX [Suspect]
     Indication: SLEEP DISORDER
     Route: 048
  2. INVEGA SUSTENNA [Suspect]
     Indication: PSYCHOTIC DISORDER
     Route: 030
  3. REMERON [Suspect]
     Indication: WEIGHT CONTROL
     Route: 048
     Dates: start: 20110601

REACTIONS (7)
  - DYSSTASIA [None]
  - TREMOR [None]
  - OVERDOSE [None]
  - ASTHENIA [None]
  - MALAISE [None]
  - FALL [None]
  - MYALGIA [None]
